FAERS Safety Report 5697028-0 (Version None)
Quarter: 2008Q2

REPORT INFORMATION
  Report Type: 
  Country: None (occurrence: None)
  Receive Date: 20080408
  Receipt Date: 20070314
  Transmission Date: 20081010
  Serious: No
  Sender: FDA-Public Use
  Company Number: US-BAYER-US-2007-009087

PATIENT
  Age: 33 Year
  Sex: Female
  Weight: 122 kg

DRUGS (6)
  1. YASMIN [Suspect]
     Indication: PREMENSTRUAL SYNDROME
     Route: 048
     Dates: start: 20070303
  2. TOPAMAX [Concomitant]
     Route: 048
  3. TEGRETOL [Concomitant]
     Route: 048
  4. REMERON /SCH/ [Concomitant]
     Route: 048
  5. EFFEXOR [Concomitant]
     Route: 048
  6. LAMICTAL ^BURROUGHS WELLCOME^ [Concomitant]
     Route: 048

REACTIONS (1)
  - DEPRESSION [None]
